FAERS Safety Report 23758665 (Version 1)
Quarter: 2024Q2

REPORT INFORMATION
  Report Type: Spontaneous
  Country: US (occurrence: None)
  Receive Date: 20240418
  Receipt Date: 20240418
  Transmission Date: 20240716
  Serious: No
  Sender: FDA-Public Use
  Company Number: US-ROCHE-3353870

PATIENT

DRUGS (2)
  1. AVASTIN [Suspect]
     Active Substance: BEVACIZUMAB
     Indication: Glioblastoma
     Route: 065
  2. TEMODAR [Concomitant]
     Active Substance: TEMOZOLOMIDE
     Indication: Glioblastoma

REACTIONS (1)
  - Disease progression [Unknown]
